FAERS Safety Report 7685518-0 (Version None)
Quarter: 2011Q3

REPORT INFORMATION
  Report Type: 
  Country: None (occurrence: None)
  Receive Date: 20110816
  Receipt Date: 20101130
  Transmission Date: 20111222
  Serious: No
  Sender: FDA-Public Use
  Company Number: US-BAYER-2010-007416

PATIENT
  Sex: Female

DRUGS (4)
  1. LOCOID LIPOCREAM [Concomitant]
     Indication: ECZEMA
  2. PROTOPIC [Concomitant]
     Indication: ECZEMA
  3. TRIAMCINOLONE [Concomitant]
     Indication: ECZEMA
  4. MIRENA [Suspect]
     Dosage: 20 ?G/D, CONT
     Route: 015

REACTIONS (3)
  - GENITAL HAEMORRHAGE [None]
  - MEDICAL DEVICE DISCOMFORT [None]
  - ABDOMINAL PAIN LOWER [None]
